FAERS Safety Report 18062586 (Version 5)
Quarter: 2021Q3

REPORT INFORMATION
  Report Type: Report from Study
  Country: JP (occurrence: JP)
  Receive Date: 20200724
  Receipt Date: 20210720
  Transmission Date: 20211014
  Serious: Yes (Other)
  Sender: FDA-Public Use
  Company Number: JP-CELLTRION INC.-2020JP024524

PATIENT

DRUGS (55)
  1. CT?P6 [Suspect]
     Active Substance: INVESTIGATIONAL BIOSIMILARS
     Dosage: 260 MG, QD
     Route: 041
     Dates: start: 20200914, end: 20200914
  2. CT?P6 [Suspect]
     Active Substance: INVESTIGATIONAL BIOSIMILARS
     Dosage: 260 MG, QD
     Route: 041
     Dates: start: 20201026, end: 20201026
  3. TEGAFUR GIMERACIL AND OTERACIL POTASSIUM [Suspect]
     Active Substance: GIMERACIL\OTERACIL\TEGAFUR
     Dosage: 50 MG, QD
     Route: 048
     Dates: start: 20200601, end: 20200615
  4. TEGAFUR GIMERACIL AND OTERACIL POTASSIUM [Suspect]
     Active Substance: GIMERACIL\OTERACIL\TEGAFUR
     Dosage: 50 MG, QD
     Route: 048
     Dates: start: 20200914, end: 20200928
  5. BESOFTEN [Concomitant]
     Active Substance: PENTOSAN POLYSULFATE SODIUM
     Dosage: UNK
     Dates: start: 20210301
  6. CT?P6 [Suspect]
     Active Substance: INVESTIGATIONAL BIOSIMILARS
     Dosage: 260 MG, QD
     Route: 041
     Dates: start: 20200824, end: 20200824
  7. CT?P6 [Suspect]
     Active Substance: INVESTIGATIONAL BIOSIMILARS
     Dosage: 260 MG, QD
     Route: 041
     Dates: start: 20201228, end: 20201228
  8. TEGAFUR GIMERACIL AND OTERACIL POTASSIUM [Suspect]
     Active Substance: GIMERACIL\OTERACIL\TEGAFUR
     Dosage: 50 MG, QD
     Route: 048
     Dates: start: 20210301, end: 20210315
  9. DOMPERIDONE [Concomitant]
     Active Substance: DOMPERIDONE
     Indication: MALNUTRITION
     Dosage: UNK
     Dates: end: 20201026
  10. PRIMPERAN [Concomitant]
     Active Substance: METOCLOPRAMIDE HYDROCHLORIDE
     Indication: PROPHYLAXIS
     Dosage: UNK
     Dates: end: 20200601
  11. POLAPREZINC OD [Concomitant]
     Active Substance: POLAPREZINC
     Indication: TASTE DISORDER
     Dosage: UNK
     Dates: start: 20200413, end: 20200712
  12. CT?P6 [Suspect]
     Active Substance: INVESTIGATIONAL BIOSIMILARS
     Dosage: 260 MG, QD
     Route: 041
     Dates: start: 20201207, end: 20201207
  13. CT?P6 [Suspect]
     Active Substance: INVESTIGATIONAL BIOSIMILARS
     Dosage: 260 MG, QD
     Route: 041
     Dates: start: 20210118, end: 20210118
  14. TEGAFUR GIMERACIL AND OTERACIL POTASSIUM [Suspect]
     Active Substance: GIMERACIL\OTERACIL\TEGAFUR
     Dosage: 50 MG, QD
     Route: 048
     Dates: start: 20200824, end: 20200907
  15. BARACLUDE [Concomitant]
     Active Substance: ENTECAVIR
     Indication: HEPATITIS B
     Dosage: UNK
     Dates: start: 20200303
  16. ARGAMATE [Concomitant]
     Active Substance: CALCIUM POLYSTYRENE SULFONATE
     Indication: HYPERKALAEMIA
     Dosage: UNK
  17. AMITIZA [Concomitant]
     Active Substance: LUBIPROSTONE
     Indication: CONSTIPATION
     Dosage: UNK
     Dates: start: 20200413, end: 20200712
  18. CT?P6 [Suspect]
     Active Substance: INVESTIGATIONAL BIOSIMILARS
     Dosage: 260 MG, QD
     Route: 041
     Dates: start: 20200622, end: 20200622
  19. CT?P6 [Suspect]
     Active Substance: INVESTIGATIONAL BIOSIMILARS
     Dosage: 260 MG, QD
     Route: 041
     Dates: start: 20200803, end: 20200803
  20. TEGAFUR GIMERACIL AND OTERACIL POTASSIUM [Suspect]
     Active Substance: GIMERACIL\OTERACIL\TEGAFUR
     Dosage: 50 MG, QD
     Route: 048
     Dates: start: 20201116, end: 20201130
  21. TEGAFUR GIMERACIL AND OTERACIL POTASSIUM [Suspect]
     Active Substance: GIMERACIL\OTERACIL\TEGAFUR
     Dosage: 50 MG, QD
     Route: 048
     Dates: start: 20210208, end: 20210222
  22. EMEND [Concomitant]
     Active Substance: APREPITANT
     Indication: PROPHYLAXIS
     Dosage: UNK
     Dates: end: 20200325
  23. DECADRON [Concomitant]
     Active Substance: DEXAMETHASONE
     Indication: PROPHYLAXIS
     Dosage: UNK
     Dates: end: 20200325
  24. CT?P6 [Suspect]
     Active Substance: INVESTIGATIONAL BIOSIMILARS
     Dosage: 260 MG, QD
     Route: 041
     Dates: start: 20200601, end: 20200601
  25. CT?P6 [Suspect]
     Active Substance: INVESTIGATIONAL BIOSIMILARS
     Dosage: 260 MG, QD
     Route: 041
     Dates: start: 20200713, end: 20200713
  26. CT?P6 [Suspect]
     Active Substance: INVESTIGATIONAL BIOSIMILARS
     Dosage: 260 MG, QD
     Route: 041
     Dates: start: 20201005, end: 20201005
  27. TEGAFUR GIMERACIL AND OTERACIL POTASSIUM [Suspect]
     Active Substance: GIMERACIL\OTERACIL\TEGAFUR
     Dosage: 50 MG, QD
     Route: 048
     Dates: start: 20200622, end: 20200706
  28. TEGAFUR GIMERACIL AND OTERACIL POTASSIUM [Suspect]
     Active Substance: GIMERACIL\OTERACIL\TEGAFUR
     Dosage: 50 MG, QD
     Route: 048
     Dates: start: 20200713, end: 20200727
  29. TEGAFUR GIMERACIL AND OTERACIL POTASSIUM [Suspect]
     Active Substance: GIMERACIL\OTERACIL\TEGAFUR
     Dosage: 50 MG, QD
     Route: 048
     Dates: start: 20200803, end: 20200817
  30. TEGAFUR GIMERACIL AND OTERACIL POTASSIUM [Suspect]
     Active Substance: GIMERACIL\OTERACIL\TEGAFUR
     Dosage: 50 MG, QD
     Route: 048
     Dates: start: 20201207, end: 20201221
  31. MOHRUS [Concomitant]
     Active Substance: KETOPROFEN
     Indication: SPINAL STENOSIS
     Dosage: UNK
  32. CT?P6 [Suspect]
     Active Substance: INVESTIGATIONAL BIOSIMILARS
     Dosage: 260 MG, QD
     Route: 041
     Dates: start: 20210322, end: 20210322
  33. CT?P6 [Suspect]
     Active Substance: INVESTIGATIONAL BIOSIMILARS
     Dosage: 260 MG, QD
     Route: 041
     Dates: start: 20210412, end: 20210412
  34. OXALIPLATIN. [Suspect]
     Active Substance: OXALIPLATIN
     Indication: HER2 POSITIVE GASTRIC CANCER
     Dosage: 120 MG, QD
     Route: 041
     Dates: start: 20200323, end: 20200323
  35. TEGAFUR GIMERACIL AND OTERACIL POTASSIUM [Suspect]
     Active Substance: GIMERACIL\OTERACIL\TEGAFUR
     Indication: HER2 POSITIVE GASTRIC CANCER
     Dosage: 50 MG, QD
     Route: 048
     Dates: start: 20200323, end: 20200406
  36. TEGAFUR GIMERACIL AND OTERACIL POTASSIUM [Suspect]
     Active Substance: GIMERACIL\OTERACIL\TEGAFUR
     Dosage: 50 MG, QD
     Route: 048
     Dates: start: 20201005, end: 20201019
  37. TEGAFUR GIMERACIL AND OTERACIL POTASSIUM [Suspect]
     Active Substance: GIMERACIL\OTERACIL\TEGAFUR
     Dosage: 50 MG, QD
     Route: 048
     Dates: start: 20201026, end: 20201109
  38. AMLODIPINE [Concomitant]
     Active Substance: AMLODIPINE BESYLATE
     Indication: HYPERTENSION
     Dosage: UNK
  39. CT?P6 [Suspect]
     Active Substance: INVESTIGATIONAL BIOSIMILARS
     Indication: HER2 POSITIVE GASTRIC CANCER
     Dosage: 400 MG, QD
     Route: 041
     Dates: start: 20200323, end: 20200323
  40. CT?P6 [Suspect]
     Active Substance: INVESTIGATIONAL BIOSIMILARS
     Dosage: 270 MG, QD
     Route: 041
     Dates: start: 20200413, end: 20200413
  41. CT?P6 [Suspect]
     Active Substance: INVESTIGATIONAL BIOSIMILARS
     Dosage: 270 MG, QD
     Route: 041
     Dates: start: 20200511, end: 20200511
  42. CT?P6 [Suspect]
     Active Substance: INVESTIGATIONAL BIOSIMILARS
     Dosage: 260 MG, QD
     Route: 041
     Dates: start: 20201116, end: 20201116
  43. TEGAFUR GIMERACIL AND OTERACIL POTASSIUM [Suspect]
     Active Substance: GIMERACIL\OTERACIL\TEGAFUR
     Dosage: 50 MG, QD
     Route: 048
     Dates: start: 20201228, end: 20210111
  44. TEGAFUR GIMERACIL AND OTERACIL POTASSIUM [Suspect]
     Active Substance: GIMERACIL\OTERACIL\TEGAFUR
     Dosage: 50 MG, QD
     Route: 048
     Dates: start: 20210118, end: 20210201
  45. TEGAFUR GIMERACIL AND OTERACIL POTASSIUM [Suspect]
     Active Substance: GIMERACIL\OTERACIL\TEGAFUR
     Dosage: 50 MG, QD
     Route: 048
     Dates: start: 20210412, end: 20210426
  46. ELENTAL [Concomitant]
     Active Substance: AMINO ACIDS\CARBOHYDRATES\MINERALS\SOYBEAN OIL\VITAMINS
     Indication: MALNUTRITION
     Dosage: UNK
     Dates: end: 20200510
  47. HIRUDOID [Concomitant]
     Active Substance: GLYCOSAMINOGLYCANS
     Indication: ASTEATOSIS
     Dosage: UNK
     Dates: end: 20210228
  48. ENORAS [Concomitant]
     Indication: MALNUTRITION
     Dosage: UNK
     Dates: start: 20200511
  49. CT?P6 [Suspect]
     Active Substance: INVESTIGATIONAL BIOSIMILARS
     Dosage: 260 MG, QD
     Route: 041
     Dates: start: 20210208, end: 20210208
  50. CT?P6 [Suspect]
     Active Substance: INVESTIGATIONAL BIOSIMILARS
     Dosage: 260 MG, QD
     Route: 041
     Dates: start: 20210301, end: 20210301
  51. TEGAFUR GIMERACIL AND OTERACIL POTASSIUM [Suspect]
     Active Substance: GIMERACIL\OTERACIL\TEGAFUR
     Dosage: 50 MG, QD
     Route: 048
     Dates: start: 20200511, end: 20200525
  52. TEGAFUR GIMERACIL AND OTERACIL POTASSIUM [Suspect]
     Active Substance: GIMERACIL\OTERACIL\TEGAFUR
     Dosage: 50 MG, QD
     Route: 048
     Dates: start: 20210322, end: 20210405
  53. CYMBALTA [Concomitant]
     Active Substance: DULOXETINE HYDROCHLORIDE
     Indication: SPINAL STENOSIS
     Dosage: UNK
  54. MECOBALAMIN [Concomitant]
     Active Substance: METHYLCOBALAMIN
     Indication: SPINAL LIGAMENT OSSIFICATION
     Dosage: UNK
  55. AZUNOL GARGLE LIQUID [Concomitant]
     Active Substance: SODIUM GUALENATE MONOHYDRATE
     Indication: PROPHYLAXIS
     Dosage: UNK
     Dates: end: 20200530

REACTIONS (14)
  - Hyperkalaemia [Recovering/Resolving]
  - Decreased appetite [Recovered/Resolved]
  - Malnutrition [Recovering/Resolving]
  - Cardiac disorder [Not Recovered/Not Resolved]
  - Erythema [Recovering/Resolving]
  - Altered state of consciousness [Recovered/Resolved]
  - Epistaxis [Recovering/Resolving]
  - Underdose [Unknown]
  - Malaise [Recovered/Resolved]
  - Condition aggravated [Recovering/Resolving]
  - Off label use [Unknown]
  - Overdose [Unknown]
  - Nausea [Recovered/Resolved]
  - Anaemia [Not Recovered/Not Resolved]

NARRATIVE: CASE EVENT DATE: 20200323
